FAERS Safety Report 12619014 (Version 2)
Quarter: 2020Q1

REPORT INFORMATION
  Report Type: Report from Study
  Country: US (occurrence: US)
  Receive Date: 20160803
  Receipt Date: 20200127
  Transmission Date: 20200409
  Serious: Yes (Congenital Anomaly, Other)
  Sender: FDA-Public Use
  Company Number: US-SA-200721698GDDC

PATIENT
  Age: 1 Day
  Sex: Male

DRUGS (2)
  1. PREDNISONE. [Suspect]
     Active Substance: PREDNISONE
     Indication: MATERNAL EXPOSURE DURING PREGNANCY
     Route: 064
  2. LEFLUNOMIDE. [Suspect]
     Active Substance: LEFLUNOMIDE
     Indication: MATERNAL EXPOSURE DURING PREGNANCY
     Dosage: MATERNAL DOSE: 20MG, QD FROM 0.4 TO 3.7 WEEKS
     Route: 064
     Dates: start: 20070423, end: 20070522

REACTIONS (11)
  - Heart block congenital [Unknown]
  - Pierre Robin syndrome [Recovering/Resolving]
  - QRS axis abnormal [Unknown]
  - Chondrodystrophy [Recovering/Resolving]
  - Cleft palate [Recovering/Resolving]
  - Spina bifida occulta [Recovering/Resolving]
  - Foetal exposure during pregnancy [Unknown]
  - Patent ductus arteriosus [Unknown]
  - Tachyarrhythmia [Unknown]
  - Bundle branch block right [Unknown]
  - Premature baby [Unknown]

NARRATIVE: CASE EVENT DATE: 20071217
